FAERS Safety Report 25433825 (Version 1)
Quarter: 2025Q2

REPORT INFORMATION
  Report Type: Report from Study
  Country: BR (occurrence: BR)
  Receive Date: 20250613
  Receipt Date: 20250613
  Transmission Date: 20250717
  Serious: Yes (Other)
  Sender: ABBVIE
  Company Number: BR-ABBVIE-6319013

PATIENT
  Age: 40 Year
  Sex: Male
  Weight: 64 kg

DRUGS (1)
  1. HUMIRA [Suspect]
     Active Substance: ADALIMUMAB
     Indication: Crohn^s disease
     Route: 058
     Dates: end: 2025

REACTIONS (4)
  - Intestinal perforation [Unknown]
  - Intestinal anastomosis [Recovering/Resolving]
  - Lactose intolerance [Unknown]
  - Magnesium deficiency [Recovered/Resolved]

NARRATIVE: CASE EVENT DATE: 20250501
